FAERS Safety Report 19627739 (Version 1)
Quarter: 2021Q3

REPORT INFORMATION
  Report Type: Report from Study
  Country: DE (occurrence: DE)
  Receive Date: 20210728
  Receipt Date: 20210728
  Transmission Date: 20211014
  Serious: Yes (Other)
  Sender: FDA-Public Use
  Company Number: DE-TAKEDA-DE201738159

PATIENT
  Sex: Male

DRUGS (9)
  1. DOXYCYCLIN [DOXYCYCLINE] [Concomitant]
     Active Substance: DOXYCYCLINE
     Indication: PEMPHIGOID
     Route: 065
  2. FOLIC ACID. [Concomitant]
     Active Substance: FOLIC ACID
     Indication: NORMOCHROMIC NORMOCYTIC ANAEMIA
     Route: 065
  3. TEDUGLUTIDE [Suspect]
     Active Substance: TEDUGLUTIDE
     Indication: SHORT-BOWEL SYNDROME
     Dosage: 3.1 MILLIGRAM (DAILY DOSE MG/KG 0.05), OTHER (TED DOSES PER WEEK 7)
     Route: 065
     Dates: end: 20200729
  4. TEDUGLUTIDE [Suspect]
     Active Substance: TEDUGLUTIDE
     Indication: SHORT-BOWEL SYNDROME
     Dosage: 3.1 MILLIGRAM (DAILY DOSE MG/KG 0.05), OTHER (TED DOSES PER WEEK 7)
     Route: 065
     Dates: end: 20200729
  5. FLUCONAZOLE. [Concomitant]
     Active Substance: FLUCONAZOLE
     Indication: PRODUCT USED FOR UNKNOWN INDICATION
     Route: 065
  6. CEFEPIME [Concomitant]
     Active Substance: CEFEPIME HYDROCHLORIDE
     Indication: DEVICE RELATED SEPSIS
     Route: 065
  7. TEDUGLUTIDE [Suspect]
     Active Substance: TEDUGLUTIDE
     Indication: SHORT-BOWEL SYNDROME
     Dosage: 3.1 MILLIGRAM (DAILY DOSE MG/KG 0.05), OTHER (TED DOSES PER WEEK 7)
     Route: 065
     Dates: end: 20200729
  8. TEDUGLUTIDE [Suspect]
     Active Substance: TEDUGLUTIDE
     Indication: SHORT-BOWEL SYNDROME
     Dosage: 3.1 MILLIGRAM (DAILY DOSE MG/KG 0.05), OTHER (TED DOSES PER WEEK 7)
     Route: 065
     Dates: end: 20200729
  9. IRON [Concomitant]
     Active Substance: IRON
     Indication: NORMOCHROMIC NORMOCYTIC ANAEMIA
     Route: 065

REACTIONS (6)
  - Oesophageal candidiasis [Recovered/Resolved]
  - Nausea [Recovered/Resolved]
  - Gastrointestinal fistula [Not Recovered/Not Resolved]
  - Gastritis [Recovered/Resolved]
  - Urinary tract infection [Recovered/Resolved]
  - Splenomegaly [Not Recovered/Not Resolved]

NARRATIVE: CASE EVENT DATE: 20170301
